FAERS Safety Report 6364800-3 (Version None)
Quarter: 2009Q3

REPORT INFORMATION
  Report Type: 
  Country: None (occurrence: None)
  Receive Date: 20090919
  Receipt Date: 20090728
  Transmission Date: 20100115
  Serious: No
  Sender: FDA-Public Use
  Company Number: US-ABBOTT-09P-163-0588493-00

PATIENT
  Sex: Female
  Weight: 102.15 kg

DRUGS (1)
  1. HUMIRA [Suspect]
     Indication: RHEUMATOID ARTHRITIS
     Route: 058
     Dates: start: 20090501, end: 20090722

REACTIONS (6)
  - BRONCHITIS [None]
  - CHEST DISCOMFORT [None]
  - DYSPHONIA [None]
  - PRODUCTIVE COUGH [None]
  - RHINORRHOEA [None]
  - SPUTUM DISCOLOURED [None]
